FAERS Safety Report 8611692 (Version 2)
Quarter: 2012Q4

REPORT INFORMATION
  Report Type: 
  Country: CN (occurrence: CN)
  Receive Date: 20120613
  Receipt Date: 20120828
  Transmission Date: 20130627
  Serious: Yes (Other)
  Sender: FDA-Public Use
  Company Number: CN-ABBOTT-12P-035-0943804-00

PATIENT
  Age: 62 Year
  Sex: Male

DRUGS (1)
  1. DEPAKINE TABLETS [Suspect]
     Indication: EPILEPSY
     Dosage: Gastro-resistant tablet, once daily
     Route: 048
     Dates: start: 201201

REACTIONS (4)
  - Loss of consciousness [Unknown]
  - Epilepsy [Not Recovered/Not Resolved]
  - Petit mal epilepsy [Unknown]
  - Seizure like phenomena [Unknown]
